FAERS Safety Report 8158211-8 (Version None)
Quarter: 2012Q1

REPORT INFORMATION
  Report Type: 
  Country: None (occurrence: None)
  Receive Date: 20120222
  Receipt Date: 20120209
  Transmission Date: 20120608
  Serious: Yes (Congenital Anomaly, Other)
  Sender: FDA-Public Use
  Company Number: DE-MYLANLABS-2012S1003607

PATIENT
  Age: 30 Year
  Sex: Female
  Weight: 80 kg

DRUGS (5)
  1. LAMOTRIGINE [Suspect]
     Dates: end: 20110211
  2. LEVOTHYROXINE SODIUM [Concomitant]
     Indication: HYPOTHYROIDISM
     Route: 048
     Dates: start: 20100708, end: 20110211
  3. FRISIUM [Suspect]
     Indication: EPILEPSY
     Route: 048
     Dates: start: 20101217, end: 20110211
  4. LAMOTRIGINE [Suspect]
     Indication: EPILEPSY
     Route: 048
     Dates: start: 20100708, end: 20100928
  5. FOLIC ACID [Concomitant]
     Indication: PROPHYLAXIS OF NEURAL TUBE DEFECT
     Route: 048
     Dates: start: 20100708

REACTIONS (5)
  - FEMUR FRACTURE [None]
  - MATERNAL EXPOSURE DURING PREGNANCY [None]
  - VITAMIN D DEFICIENCY [None]
  - FOETAL HEART RATE DECELERATION [None]
  - CONVULSION [None]
